FAERS Safety Report 5829888-4 (Version None)
Quarter: 2008Q3

REPORT INFORMATION
  Report Type: 
  Country: None (occurrence: None)
  Receive Date: 20080723
  Receipt Date: 20080709
  Transmission Date: 20090109
  Serious: Yes (Other)
  Sender: FDA-Public Use
  Company Number: 2250051-2008-00361

PATIENT
  Sex: Female

DRUGS (1)
  1. RHOGAM [Suspect]
     Dosage: 300 UG 1X IM
     Route: 030

REACTIONS (1)
  - HEPATITIS B [None]
